FAERS Safety Report 9753614 (Version 1)
Quarter: 2013Q4

REPORT INFORMATION
  Report Type: Spontaneous
  Country: AR (occurrence: AR)
  Receive Date: 20131213
  Receipt Date: 20131213
  Transmission Date: 20140711
  Serious: Yes (Other)
  Sender: FDA-Public Use
  Company Number: PHHY2013AR144875

PATIENT
  Sex: Female

DRUGS (2)
  1. SANDOSTATIN LAR [Suspect]
     Indication: MEDULLARY THYROID CANCER
     Dosage: UNK UKN, UNK
     Dates: start: 2010, end: 201304
  2. SANDOSTATIN LAR [Suspect]
     Indication: OFF LABEL USE

REACTIONS (1)
  - Neoplasm [Not Recovered/Not Resolved]
